FAERS Safety Report 8250470-6 (Version None)
Quarter: 2012Q2

REPORT INFORMATION
  Report Type: 
  Country: None (occurrence: None)
  Receive Date: 20120402
  Receipt Date: 20120402
  Transmission Date: 20120825
  Serious: Yes (Hospitalization)
  Sender: FDA-Public Use
  Company Number: None

PATIENT
  Age: 67 Year
  Sex: Male
  Weight: 96 kg

DRUGS (1)
  1. GLIPIZIDE [Suspect]
     Indication: DIABETES MELLITUS
     Dosage: 10MG
     Route: 048

REACTIONS (4)
  - HYPOGLYCAEMIA [None]
  - HYPERHIDROSIS [None]
  - SYNCOPE [None]
  - WEIGHT DECREASED [None]
